FAERS Safety Report 18312277 (Version 1)
Quarter: 2020Q3

REPORT INFORMATION
  Report Type: Spontaneous
  Country: SE (occurrence: SE)
  Receive Date: 20200925
  Receipt Date: 20200925
  Transmission Date: 20201103
  Serious: Yes (Life-Threatening, Hospitalization)
  Sender: FDA-Public Use
  Company Number: SE-MYLANLABS-2020M1081360

PATIENT
  Age: 70 Year
  Sex: Female

DRUGS (7)
  1. FENTANYL. [Suspect]
     Active Substance: FENTANYL
     Indication: PRODUCT USED FOR UNKNOWN INDICATION
     Dosage: UNKNOWN
     Route: 065
  2. CANDESARTAN. [Suspect]
     Active Substance: CANDESARTAN
     Indication: PRODUCT USED FOR UNKNOWN INDICATION
     Dosage: UNKNOWN
     Route: 065
  3. CITALOPRAM [Suspect]
     Active Substance: CITALOPRAM HYDROBROMIDE
     Indication: PRODUCT USED FOR UNKNOWN INDICATION
     Dosage: UNKNOWN
     Route: 048
  4. PROPIOMAZINE [Suspect]
     Active Substance: PROPIOMAZINE
     Indication: PRODUCT USED FOR UNKNOWN INDICATION
     Dosage: UNKNOWN
     Route: 065
  5. OXAZEPAM. [Suspect]
     Active Substance: OXAZEPAM
     Indication: PRODUCT USED FOR UNKNOWN INDICATION
     Dosage: UNKNOWN
     Route: 065
  6. METHYLTHIONINIUM CHLORIDE [Suspect]
     Active Substance: METHYLENE BLUE
     Indication: SHOCK
     Dosage: 2MG/KG FOLLOWED BY A CONTINUOUS INFUSION OF 0.5MG/KG/H
     Route: 065
  7. AMLODIPINE [Suspect]
     Active Substance: AMLODIPINE BESYLATE
     Indication: PRODUCT USED FOR UNKNOWN INDICATION
     Dosage: UNKNOWN
     Route: 065

REACTIONS (4)
  - Overdose [Recovered/Resolved]
  - Non-cardiogenic pulmonary oedema [Recovered/Resolved]
  - Haemodynamic instability [Recovered/Resolved]
  - Shock [Recovered/Resolved]
